FAERS Safety Report 5193786-2 (Version None)
Quarter: 2006Q4

REPORT INFORMATION
  Report Type: 
  Country: None (occurrence: None)
  Receive Date: 20061221
  Receipt Date: 20061211
  Transmission Date: 20070319
  Serious: Yes (Life-Threatening)
  Sender: FDA-Public Use
  Company Number: 3630

PATIENT
  Age: 52 Year

DRUGS (1)
  1. AMNESTEEM [Suspect]

REACTIONS (1)
  - MYOCARDIAL INFARCTION [None]
